FAERS Safety Report 24595489 (Version 1)
Quarter: 2024Q4

REPORT INFORMATION
  Report Type: Report from Study
  Country: US (occurrence: US)
  Receive Date: 20241109
  Receipt Date: 20241109
  Transmission Date: 20250115
  Serious: Yes (Other)
  Sender: ABBVIE
  Company Number: US-ABBVIE-5992973

PATIENT
  Age: 68 Year
  Sex: Female

DRUGS (1)
  1. RINVOQ [Suspect]
     Active Substance: UPADACITINIB
     Indication: Rheumatoid arthritis
     Route: 048
     Dates: start: 20240923

REACTIONS (8)
  - Ventricular tachycardia [Not Recovered/Not Resolved]
  - Renal impairment [Not Recovered/Not Resolved]
  - Shoulder fracture [Recovering/Resolving]
  - Fall [Unknown]
  - Glomerular filtration rate abnormal [Unknown]
  - Renal mass [Unknown]
  - Dizziness [Unknown]
  - Fatigue [Unknown]

NARRATIVE: CASE EVENT DATE: 20240101
